FAERS Safety Report 5299580-6 (Version None)
Quarter: 2007Q2

REPORT INFORMATION
  Report Type: 
  Country: None (occurrence: None)
  Receive Date: 20070417
  Receipt Date: 20070404
  Transmission Date: 20071010
  Serious: Yes (Hospitalization)
  Sender: FDA-Public Use
  Company Number: PHEH2007US04256

PATIENT
  Sex: Female

DRUGS (4)
  1. ZELNORM [Suspect]
     Indication: CONSTIPATION
     Dosage: 6 MG, BID
     Dates: start: 20060901, end: 20070403
  2. ATENOLOL [Concomitant]
  3. TEGRETOL [Concomitant]
  4. GLYCOLAX [Concomitant]

REACTIONS (3)
  - ANAEMIA [None]
  - BLOOD POTASSIUM DECREASED [None]
  - PNEUMONIA [None]
